FAERS Safety Report 9412057 (Version 2)
Quarter: 2015Q2

REPORT INFORMATION
  Report Type: Spontaneous
  Country: US (occurrence: US)
  Receive Date: 20130722
  Receipt Date: 20150501
  Transmission Date: 20150821
  Serious: Yes (Death, Other)
  Sender: FDA-Public Use
  Company Number: US-MERCK-1307USA010964

PATIENT
  Age: 1 Day
  Sex: Male
  Weight: 2.19 kg

DRUGS (4)
  1. ISENTRESS [Suspect]
     Active Substance: RALTEGRAVIR POTASSIUM
     Indication: ACUTE HIV INFECTION
     Dosage: 800 MG, QD (COURSE 1)
     Route: 064
     Dates: start: 20121018, end: 20130125
  2. REYATAZ [Suspect]
     Active Substance: ATAZANAVIR SULFATE
     Indication: ACUTE HIV INFECTION
     Dosage: 300 MG, QD (COURSE 1)
     Route: 064
     Dates: start: 20121012, end: 20121018
  3. TRUVADA [Suspect]
     Active Substance: EMTRICITABINE\TENOFOVIR DISOPROXIL FUMARATE
     Indication: ACUTE HIV INFECTION
     Dosage: 1 TAB/CAPS, QD (COURSE 1)
     Route: 064
     Dates: start: 20121012, end: 20130125
  4. NORVIR [Suspect]
     Active Substance: RITONAVIR
     Indication: ACUTE HIV INFECTION
     Dosage: 100 MG, QD (COURSE 1)
     Route: 064
     Dates: start: 20121012, end: 20121018

REACTIONS (2)
  - Foetal death [Fatal]
  - Foetal exposure during pregnancy [Recovered/Resolved]

NARRATIVE: CASE EVENT DATE: 20130113
